FAERS Safety Report 17123092 (Version 2)
Quarter: 2019Q4

REPORT INFORMATION
  Report Type: Spontaneous
  Country: US (occurrence: US)
  Receive Date: 20191206
  Receipt Date: 20191224
  Transmission Date: 20200122
  Serious: No
  Sender: FDA-Public Use
  Company Number: US-BAUSCH-BL-2019-063598

PATIENT
  Age: 80 Year
  Sex: Female
  Weight: 99.88 kg

DRUGS (12)
  1. LORBRENA [Suspect]
     Active Substance: LORLATINIB
     Indication: LUNG NEOPLASM MALIGNANT
     Route: 065
     Dates: start: 20190907
  2. LORBRENA [Suspect]
     Active Substance: LORLATINIB
     Indication: HEPATIC CANCER
  3. ASPIRIN 81 [Concomitant]
     Active Substance: ASPIRIN
     Indication: PRODUCT USED FOR UNKNOWN INDICATION
     Dosage: LOW DOSE ASPIRIN 81 MG STARTED OVER 10 YEARS AGO FROM THE INITIAL REPORT
  4. FLECAINIDE ACETATE. [Concomitant]
     Active Substance: FLECAINIDE ACETATE
     Indication: PRODUCT USED FOR UNKNOWN INDICATION
     Dosage: STARTED 1 YEAR AGO FROM THE INITIAL REPORT
     Dates: start: 2018
  5. EVERY WOMEN MULTIVITAMIN [Concomitant]
     Indication: PRODUCT USED FOR UNKNOWN INDICATION
  6. ESCITALOPRAM OXALATE. [Concomitant]
     Active Substance: ESCITALOPRAM OXALATE
     Indication: PRODUCT USED FOR UNKNOWN INDICATION
     Dosage: STARTED 10 YEARS AGO FROM THE INITIAL REPORT
     Dates: start: 2009
  7. GINKGO B [Concomitant]
     Indication: PRODUCT USED FOR UNKNOWN INDICATION
  8. ETHACRYNIC ACID. [Suspect]
     Active Substance: ETHACRYNIC ACID
     Indication: PERIPHERAL SWELLING
     Route: 065
     Dates: start: 20191109, end: 20191111
  9. VITAMIN D3 [Concomitant]
     Active Substance: CHOLECALCIFEROL
     Indication: PRODUCT USED FOR UNKNOWN INDICATION
  10. LORBRENA [Suspect]
     Active Substance: LORLATINIB
     Indication: BRAIN NEOPLASM MALIGNANT
  11. HYDROCHLOROTHIAZIDE. [Concomitant]
     Active Substance: HYDROCHLOROTHIAZIDE
     Indication: PRODUCT USED FOR UNKNOWN INDICATION
     Dosage: STARTED 10 YEARS AGO FROM THE INITIAL REPORT
     Dates: start: 2009
  12. LOSARTAN POTASSIUM. [Concomitant]
     Active Substance: LOSARTAN POTASSIUM
     Indication: PRODUCT USED FOR UNKNOWN INDICATION
     Dosage: STARTED 10 YEARS AGO FROM THE INITIAL REPORT
     Dates: start: 2009

REACTIONS (1)
  - Therapeutic product effect incomplete [Unknown]

NARRATIVE: CASE EVENT DATE: 201911
